FAERS Safety Report 6601614-0 (Version None)
Quarter: 2010Q1

REPORT INFORMATION
  Report Type: 
  Country: None (occurrence: None)
  Receive Date: 20100225
  Receipt Date: 20100215
  Transmission Date: 20100710
  Serious: Yes (Other)
  Sender: FDA-Public Use
  Company Number: GB-ROCHE-655301

PATIENT
  Age: 29 Month
  Sex: Female

DRUGS (1)
  1. TAMIFLU [Suspect]
     Indication: H1N1 INFLUENZA
     Route: 065
     Dates: start: 20090721, end: 20090726

REACTIONS (20)
  - AGGRESSION [None]
  - AMNESIA [None]
  - APHASIA [None]
  - CONFUSIONAL STATE [None]
  - CONVULSION [None]
  - DYSARTHRIA [None]
  - DYSPHEMIA [None]
  - EPILEPSY [None]
  - EYE MOVEMENT DISORDER [None]
  - EYELID FUNCTION DISORDER [None]
  - FACIAL PALSY [None]
  - FEELING ABNORMAL [None]
  - GAIT DISTURBANCE [None]
  - LETHARGY [None]
  - OVERDOSE [None]
  - PALLOR [None]
  - PERSONALITY CHANGE [None]
  - PETIT MAL EPILEPSY [None]
  - SLEEP APNOEA SYNDROME [None]
  - SOCIAL AVOIDANT BEHAVIOUR [None]
